FAERS Safety Report 9248564 (Version 1)
Quarter: 2013Q2

REPORT INFORMATION
  Report Type: Spontaneous
  Country: FR (occurrence: FR)
  Receive Date: 20130423
  Receipt Date: 20130423
  Transmission Date: 20140414
  Serious: Yes (Hospitalization)
  Sender: FDA-Public Use
  Company Number: FR-UCBSA-083660

PATIENT
  Sex: Female

DRUGS (18)
  1. XYZALL [Suspect]
     Dosage: DAILY DOSE: 5 MG (FOR A LONG TIME)
     Route: 048
  2. ATHYMIL [Suspect]
     Dosage: (FOR A LONG TIME)
     Route: 048
  3. VALIUM [Suspect]
     Dosage: (FOR A LONG TIME)
     Route: 048
  4. MYOLASTAN [Suspect]
     Dosage: DAILY DOSE: 50 MG (FOR A LONG TIME)
     Route: 048
     Dates: end: 20120325
  5. DEBRIDAT [Suspect]
     Dosage: (FOR A LONG TIME)
     Route: 048
     Dates: end: 20120325
  6. IBUPROFENE [Suspect]
     Dosage: (FOR A LONG TIME)
     Route: 048
     Dates: end: 20120325
  7. SPASFON [Suspect]
     Dosage: 2 UNITS (FOR A LONG TIME)
     Dates: end: 20120325
  8. ATACAND [Concomitant]
     Dosage: DAILY DOSE: 8 MG (FOR A LONG TIME)
     Route: 048
  9. CORDARONE [Concomitant]
     Dosage: A HALF TABLET DAILY (FOR ALONG TIME)
     Route: 048
  10. DOLIPRANE [Concomitant]
     Dosage: 500 MG (FOR A LONG TIME)
     Route: 048
     Dates: end: 20120325
  11. INIPOMP [Concomitant]
     Dosage: DAILY DOSE: 40 MG (FOR A LONG TIME)
     Route: 048
  12. KARDEGIC [Concomitant]
     Dosage: DAILY DOSE: 75 MG (FOR A LONG TIME)
     Route: 048
  13. LEVOTHYROX [Concomitant]
     Dosage: 75 MCG OR 100 MCG DAILY (FOR A LONG TIME)
     Route: 048
  14. TANAKAN [Concomitant]
     Dosage: 1 UNIT (FOR A LONG TIME)
     Route: 048
     Dates: end: 20120325
  15. TRANSIPEG [Concomitant]
     Dosage: 1 UNIT (FOR A LONG TIME)
     Route: 048
  16. ARTELAC [Concomitant]
     Dosage: (1.6 MG/0.5 ML) 1 EYE DROP (FOR A LONG TIME)
     Route: 047
  17. LIPOSIC [Concomitant]
     Dosage: 1 APPLICATION (FOR A LONG TIME)
     Route: 047
  18. TRAVATAN [Concomitant]
     Dosage: STRENGTH: 40 MCG/ML, 1 EYE DROP DAILY
     Route: 047

REACTIONS (4)
  - Fall [Recovered/Resolved]
  - Confusional state [Recovered/Resolved]
  - Malaise [Recovered/Resolved]
  - Hyponatraemia [Recovered/Resolved]
